FAERS Safety Report 16387887 (Version 2)
Quarter: 2019Q2

REPORT INFORMATION
  Report Type: Spontaneous
  Country: US (occurrence: US)
  Receive Date: 20190604
  Receipt Date: 20190614
  Transmission Date: 20190711
  Serious: Yes (Life-Threatening, Other)
  Sender: FDA-Public Use
  Company Number: US-DRREDDYS-USA/USA/19/0110689

PATIENT
  Age: 62 Year
  Sex: Male

DRUGS (1)
  1. GEMCITABINE [Suspect]
     Active Substance: GEMCITABINE\GEMCITABINE HYDROCHLORIDE
     Indication: PANCREATIC CARCINOMA
     Dosage: 53.4 G/M2
     Route: 065

REACTIONS (4)
  - End stage renal disease [Not Recovered/Not Resolved]
  - Malignant hypertension [Unknown]
  - Thrombotic microangiopathy [Unknown]
  - Hyperkalaemia [Unknown]
